FAERS Safety Report 8802397 (Version 1)
Quarter: 2012Q4

REPORT INFORMATION
  Report Type: 
  Country: US (occurrence: US)
  Receive Date: 20120921
  Receipt Date: 20120921
  Transmission Date: 20130627
  Serious: Yes (Other)
  Sender: FDA-Public Use
  Company Number: US-009507513-1209USA003540

PATIENT
  Age: 73 Year
  Sex: Female

DRUGS (5)
  1. ISENTRESS [Suspect]
     Route: 048
  2. REYATAZ [Suspect]
  3. NEXIUM [Suspect]
  4. NORVIR [Suspect]
  5. EPIVIR [Suspect]

REACTIONS (5)
  - Renal failure [Unknown]
  - Colon cancer [Unknown]
  - Cardiac failure [Unknown]
  - Skin cancer [Unknown]
  - Cardiac murmur [Unknown]
